FAERS Safety Report 16845312 (Version 1)
Quarter: 2019Q3

REPORT INFORMATION
  Report Type: Spontaneous
  Country: US (occurrence: US)
  Receive Date: 20190924
  Receipt Date: 20190924
  Transmission Date: 20191005
  Serious: No
  Sender: FDA-Public Use
  Company Number: PHEH2019US038558

PATIENT
  Sex: Female

DRUGS (1)
  1. JADENU [Suspect]
     Active Substance: DEFERASIROX
     Indication: MINERAL METABOLISM DISORDER
     Dosage: 180 MG, QD
     Route: 048

REACTIONS (2)
  - Vertigo [Recovered/Resolved]
  - Nausea [Unknown]
